FAERS Safety Report 13486424 (Version 1)
Quarter: 2017Q2

REPORT INFORMATION
  Report Type: Spontaneous
  Country: NL (occurrence: NL)
  Receive Date: 20170426
  Receipt Date: 20170426
  Transmission Date: 20170830
  Serious: Yes (Other)
  Sender: FDA-Public Use
  Company Number: NL-TEVA-761873ACC

PATIENT
  Age: 51 Year
  Sex: Female
  Weight: 77 kg

DRUGS (1)
  1. TAMOXIFEN TABLET 20MG [Suspect]
     Active Substance: TAMOXIFEN
     Indication: BREAST CANCER
     Dosage: NOT FILLED IN
     Route: 048
     Dates: start: 20161130, end: 20161213

REACTIONS (2)
  - Neuropathy peripheral [Recovered/Resolved with Sequelae]
  - Carpal tunnel syndrome [Recovered/Resolved with Sequelae]

NARRATIVE: CASE EVENT DATE: 20161211
